FAERS Safety Report 7495459-X (Version None)
Quarter: 2011Q2

REPORT INFORMATION
  Report Type: 
  Country: None (occurrence: None)
  Receive Date: 20110523
  Receipt Date: 20110509
  Transmission Date: 20111010
  Serious: Yes (Other)
  Sender: FDA-Public Use
  Company Number: CA-JNJFOC-20110504634

PATIENT
  Sex: Male
  Weight: 72 kg

DRUGS (5)
  1. TYLENOL W/ CODEINE NO. 3 [Concomitant]
  2. METHOTREXATE [Concomitant]
     Route: 048
  3. REMICADE [Suspect]
     Indication: RHEUMATOID ARTHRITIS
     Route: 042
     Dates: start: 20090824
  4. PREDNISONE [Concomitant]
     Route: 048
  5. DIDROCAL [Concomitant]

REACTIONS (1)
  - MUSCULOSKELETAL CHEST PAIN [None]
